FAERS Safety Report 20936564 (Version 2)
Quarter: 2022Q3

REPORT INFORMATION
  Report Type: Spontaneous
  Country: US (occurrence: US)
  Receive Date: 20220609
  Receipt Date: 20220704
  Transmission Date: 20221027
  Serious: Yes (Hospitalization, Other)
  Sender: FDA-Public Use
  Company Number: US-BRISTOL-MYERS SQUIBB COMPANY-2022-038873

PATIENT
  Age: 80 Year
  Sex: Male

DRUGS (1)
  1. REVLIMID [Suspect]
     Active Substance: LENALIDOMIDE
     Indication: Plasma cell myeloma
     Dosage: EVERY DAY ON DAYS 1-14 THEN OFF FOR 7 DAYS
     Route: 048
     Dates: start: 20211123

REACTIONS (11)
  - Cerebrovascular accident [Recovered/Resolved]
  - Fall [Unknown]
  - Muscular weakness [Unknown]
  - Nausea [Unknown]
  - Dry eye [Unknown]
  - Appetite disorder [Unknown]
  - Ageusia [Unknown]
  - Weight decreased [Unknown]
  - Constipation [Unknown]
  - Paraesthesia [Unknown]
  - Off label use [Unknown]
